FAERS Safety Report 25280926 (Version 1)
Quarter: 2025Q2

REPORT INFORMATION
  Report Type: Report from Study
  Country: US (occurrence: US)
  Receive Date: 20250508
  Receipt Date: 20250508
  Transmission Date: 20250716
  Serious: Yes (Death, Other)
  Sender: UCB
  Company Number: US-UCBSA-2025017268

PATIENT
  Age: 66 Year
  Sex: Male

DRUGS (1)
  1. LACOSAMIDE [Suspect]
     Active Substance: LACOSAMIDE
     Indication: Epilepsy
     Dosage: 200 MILLIGRAM, 2X/DAY (BID)

REACTIONS (5)
  - Pneumonia [Fatal]
  - Astrocytoma [Fatal]
  - Cerebral mass effect [Unknown]
  - Brain oedema [Unknown]
  - Hiccups [Unknown]

NARRATIVE: CASE EVENT DATE: 20241231
